FAERS Safety Report 10977250 (Version 1)
Quarter: 2015Q1

REPORT INFORMATION
  Report Type: Spontaneous
  Country: JP (occurrence: None)
  Receive Date: 20150330
  Receipt Date: 20150330
  Transmission Date: 20150721
  Serious: Yes (Hospitalization)
  Sender: FDA-Public Use
  Company Number: FK201501503

PATIENT
  Age: 40 Year
  Sex: Female

DRUGS (2)
  1. PACLITAXEL (MANUFACTURER UNKNOWN) (PACLITAXEL) (PACLITAXEL) [Suspect]
     Active Substance: PACLITAXEL
     Indication: CERVIX CARCINOMA
  2. CISPLATIN (MANUFACTURER UNKNOWN) (CISPLATIN) (CISPLATIN) [Suspect]
     Active Substance: CISPLATIN
     Indication: CERVIX CARCINOMA

REACTIONS (3)
  - Toxic shock syndrome streptococcal [None]
  - Peritonitis [None]
  - Acute kidney injury [None]
